FAERS Safety Report 5366139-1 (Version None)
Quarter: 2007Q2

REPORT INFORMATION
  Report Type: 
  Country: None (occurrence: None)
  Receive Date: 20070530
  Receipt Date: 20050925
  Transmission Date: 20071010
  Serious: No
  Sender: FDA-Public Use
  Company Number: 2005PV002526

PATIENT
  Age: 69 Year
  Sex: Female
  Weight: 99.7913 kg

DRUGS (8)
  1. BYETTA [Suspect]
     Indication: DIABETES MELLITUS NON-INSULIN-DEPENDENT
     Dosage: 10 MCG;BID;SC  5 MCG;BID;SC   10 MCG;BID;SC   5 MCG;BID;SC
     Route: 058
     Dates: start: 20050830, end: 20051001
  2. BYETTA [Suspect]
     Indication: DIABETES MELLITUS NON-INSULIN-DEPENDENT
     Dosage: 10 MCG;BID;SC  5 MCG;BID;SC   10 MCG;BID;SC   5 MCG;BID;SC
     Route: 058
     Dates: start: 20050901
  3. BYETTA [Suspect]
     Indication: DIABETES MELLITUS NON-INSULIN-DEPENDENT
     Dosage: 10 MCG;BID;SC  5 MCG;BID;SC   10 MCG;BID;SC   5 MCG;BID;SC
     Route: 058
     Dates: start: 20051001
  4. BYETTA [Suspect]
  5. AMARYL [Concomitant]
  6. NOVOLOG MIX 70/30 [Concomitant]
  7. ASPIRIN [Concomitant]
  8. INSULIN [Concomitant]

REACTIONS (9)
  - CONSTIPATION [None]
  - DECREASED APPETITE [None]
  - DRUG INEFFECTIVE [None]
  - DYSPEPSIA [None]
  - GASTROOESOPHAGEAL REFLUX DISEASE [None]
  - INJECTION SITE BRUISING [None]
  - INJECTION SITE HAEMORRHAGE [None]
  - NAUSEA [None]
  - WEIGHT DECREASED [None]
